FAERS Safety Report 12681692 (Version 2)
Quarter: 2016Q4

REPORT INFORMATION
  Report Type: Spontaneous
  Country: FR (occurrence: FR)
  Receive Date: 20160824
  Receipt Date: 20161005
  Transmission Date: 20170207
  Serious: Yes (Other)
  Sender: FDA-Public Use
  Company Number: FR-BAYER-2016-163877

PATIENT
  Sex: Male

DRUGS (1)
  1. HELIXATE NEXGEN [Suspect]
     Active Substance: ANTIHEMOPHILIC FACTOR, HUMAN RECOMBINANT
     Indication: HAEMOPHILIA
     Dosage: UNKNOWN, SINCE 3 OR 4 YEARS
     Route: 065

REACTIONS (3)
  - Malaise [Unknown]
  - Haemarthrosis [Unknown]
  - Therapeutic product ineffective [Unknown]
